FAERS Safety Report 21450436 (Version 1)
Quarter: 2022Q4

REPORT INFORMATION
  Report Type: Spontaneous
  Country: AT (occurrence: AT)
  Receive Date: 20221013
  Receipt Date: 20221013
  Transmission Date: 20230113
  Serious: Yes (Other)
  Sender: FDA-Public Use
  Company Number: AT-BRISTOL-MYERS SQUIBB COMPANY-2022-116979

PATIENT
  Age: 72 Year

DRUGS (2)
  1. NIVOLUMAB [Suspect]
     Active Substance: NIVOLUMAB
     Indication: Malignant melanoma
     Dosage: NIVOLUMAB MONOTHERAPY FROM JUL-2021
     Route: 065
     Dates: start: 202106, end: 20220713
  2. IPILIMUMAB [Suspect]
     Active Substance: IPILIMUMAB
     Indication: Malignant melanoma
     Route: 065
     Dates: start: 202106, end: 20220713

REACTIONS (3)
  - Rash [Unknown]
  - Diabetes mellitus [Unknown]
  - Pancreatitis [Unknown]
